FAERS Safety Report 4634194-X (Version None)
Quarter: 2005Q2

REPORT INFORMATION
  Report Type: 
  Country: None (occurrence: None)
  Receive Date: 20050413
  Receipt Date: 20050401
  Transmission Date: 20051028
  Serious: Yes (Hospitalization)
  Sender: FDA-Public Use
  Company Number: SG-BRISTOL-MYERS SQUIBB COMPANY-12918892

PATIENT
  Age: 41 Year
  Sex: Male

DRUGS (3)
  1. CETUXIMAB [Suspect]
     Indication: LUNG CARCINOMA CELL TYPE UNSPECIFIED STAGE 0
     Route: 041
     Dates: start: 20050201
  2. CISPLATIN [Suspect]
     Indication: LUNG CARCINOMA CELL TYPE UNSPECIFIED STAGE 0
     Route: 041
     Dates: start: 20050201
  3. VINORELBINE TARTRATE [Suspect]
     Indication: LUNG CARCINOMA CELL TYPE UNSPECIFIED STAGE 0
     Route: 041
     Dates: start: 20050201

REACTIONS (4)
  - DEHYDRATION [None]
  - PLEURITIC PAIN [None]
  - PNEUMONIA [None]
  - RASH [None]
